FAERS Safety Report 6657548-9 (Version None)
Quarter: 2010Q1

REPORT INFORMATION
  Report Type: 
  Country: None (occurrence: None)
  Receive Date: 20100330
  Receipt Date: 20100318
  Transmission Date: 20100710
  Serious: Yes (Death)
  Sender: FDA-Public Use
  Company Number: ES-ALEXION-A201000341

PATIENT

DRUGS (3)
  1. SOLIRIS [Suspect]
     Indication: PAROXYSMAL NOCTURNAL HAEMOGLOBINURIA
     Dosage: 600 MG, QW
     Route: 042
     Dates: start: 20071201
  2. SOLIRIS [Suspect]
     Dosage: 900 MG, Q2W
     Route: 042
     Dates: end: 20090801
  3. SOLIRIS [Suspect]
     Dosage: 900 MG, SINGLE
     Route: 042
     Dates: start: 20100201, end: 20100201

REACTIONS (2)
  - COOMBS TEST POSITIVE [None]
  - DEATH [None]
